FAERS Safety Report 8422873-8 (Version None)
Quarter: 2012Q2

REPORT INFORMATION
  Report Type: 
  Country: None (occurrence: None)
  Receive Date: 20120608
  Receipt Date: 20120531
  Transmission Date: 20120825
  Serious: Yes (Hospitalization)
  Sender: FDA-Public Use
  Company Number: US-GLAXOSMITHKLINE-A0887135A

PATIENT
  Age: 55 Year
  Sex: Female

DRUGS (12)
  1. ESTRADIOL [Concomitant]
  2. SEROQUEL [Concomitant]
  3. AVANDIA [Suspect]
     Indication: TYPE 2 DIABETES MELLITUS
     Dosage: 8MG PER DAY
     Route: 048
     Dates: start: 20021105, end: 20090526
  4. CLONAZEPAM [Concomitant]
  5. EFFEXOR [Concomitant]
  6. TRICOR [Concomitant]
  7. MAVIK [Concomitant]
  8. GLIPIZIDE [Concomitant]
  9. CELEBREX [Concomitant]
  10. GABAPENTIN [Concomitant]
  11. NEXIUM [Concomitant]
  12. ALBUTEROL [Concomitant]

REACTIONS (4)
  - TRANSIENT ISCHAEMIC ATTACK [None]
  - CARDIAC FAILURE CONGESTIVE [None]
  - CORONARY ARTERY DISEASE [None]
  - RENAL FAILURE [None]
